FAERS Safety Report 11103754 (Version 1)
Quarter: 2015Q2

REPORT INFORMATION
  Report Type: Spontaneous
  Country: JP (occurrence: JP)
  Receive Date: 20150511
  Receipt Date: 20150511
  Transmission Date: 20150821
  Serious: Yes (Other)
  Sender: FDA-Public Use
  Company Number: JP-UCBSA-2015014164

PATIENT
  Age: 9 Month

DRUGS (2)
  1. ZONISAMIDE. [Concomitant]
     Active Substance: ZONISAMIDE
     Indication: PRODUCT USED FOR UNKNOWN INDICATION
     Dosage: UNK
     Route: 048
  2. KEPPRA [Suspect]
     Active Substance: LEVETIRACETAM
     Indication: EPILEPSY
     Dosage: 30 MG/KG PER DOSE
     Route: 048
     Dates: start: 201501

REACTIONS (2)
  - Off label use [Unknown]
  - Platelet count increased [Unknown]

NARRATIVE: CASE EVENT DATE: 2015
